FAERS Safety Report 4929536-1 (Version None)
Quarter: 2006Q1

REPORT INFORMATION
  Report Type: 
  Country: None (occurrence: None)
  Receive Date: 20060127
  Receipt Date: 20051110
  Transmission Date: 20060701
  Serious: Yes (Other)
  Sender: FDA-Public Use
  Company Number: 2005155027

PATIENT
  Age: 54 Year
  Sex: Female
  Weight: 90.2658 kg

DRUGS (11)
  1. LYRICA [Suspect]
     Indication: MULTIPLE SCLEROSIS
     Dosage: 75 MG (75 MG, 1 IN 1 D), ORAL
     Route: 048
     Dates: start: 20051109
  2. PAROXETINE HCL [Concomitant]
  3. MULTIVITAMINS, PLAIN [Concomitant]
  4. CALCIUM GLUCONATE [Concomitant]
  5. OMEGA 3 (FISH OIL) [Concomitant]
  6. PRILOSEC [Concomitant]
  7. VALTREX [Concomitant]
  8. BACLOFEN [Concomitant]
  9. VITAMIN E [Concomitant]
  10. MINERAL SUPPLEMENTS [Concomitant]
  11. PAROXETINE HCL [Concomitant]

REACTIONS (2)
  - DIZZINESS [None]
  - SOMNOLENCE [None]
